FAERS Safety Report 18231821 (Version 1)
Quarter: 2020Q3

REPORT INFORMATION
  Report Type: Spontaneous
  Country: US (occurrence: US)
  Receive Date: 20200904
  Receipt Date: 20200904
  Transmission Date: 20201103
  Serious: No
  Sender: FDA-Public Use
  Company Number: US-VELOXIS PHARMACEUTICALS-2020VELUS-000465

PATIENT
  Age: 34 Year
  Sex: Female

DRUGS (2)
  1. ENVARSUS XR [Suspect]
     Active Substance: TACROLIMUS
     Dosage: 6 MG QD (STRENGTH 1 MG)
     Route: 065
     Dates: start: 201911
  2. ENVARSUS XR [Suspect]
     Active Substance: TACROLIMUS
     Dosage: 6 MG QD (STRENGTH 4 MG)
     Route: 065
     Dates: start: 201911

REACTIONS (4)
  - Depression [Unknown]
  - Fatigue [Unknown]
  - Diarrhoea [Unknown]
  - Tremor [Unknown]

NARRATIVE: CASE EVENT DATE: 20200507
